FAERS Safety Report 20635547 (Version 1)
Quarter: 2022Q1

REPORT INFORMATION
  Report Type: Spontaneous
  Country: FR (occurrence: FR)
  Receive Date: 20220325
  Receipt Date: 20220325
  Transmission Date: 20220424
  Serious: Yes (Disabling, Congenital Anomaly)
  Sender: FDA-Public Use
  Company Number: FR-ABBVIE-22K-056-4324669-00

PATIENT
  Sex: Male

DRUGS (1)
  1. VALPROATE SODIUM [Suspect]
     Active Substance: VALPROATE SODIUM
     Indication: Maternal exposure timing unspecified
     Route: 064

REACTIONS (36)
  - Dysmorphism [Unknown]
  - Language disorder [Unknown]
  - Speech disorder developmental [Unknown]
  - Dyslexia [Unknown]
  - Attention deficit hyperactivity disorder [Unknown]
  - Aphasia [Unknown]
  - Kyphosis [Unknown]
  - Visual impairment [Unknown]
  - Vestibular disorder [Unknown]
  - Dysplasia [Unknown]
  - Binocular eye movement disorder [Unknown]
  - Affective disorder [Unknown]
  - Strabismus [Unknown]
  - Disability [Unknown]
  - Diplopia [Unknown]
  - Personality disorder [Unknown]
  - Behaviour disorder [Unknown]
  - Disturbance in attention [Unknown]
  - Psychomotor retardation [Unknown]
  - Aggression [Unknown]
  - Ear, nose and throat disorder [Unknown]
  - Frustration tolerance decreased [Unknown]
  - Withdrawal syndrome [Unknown]
  - Immobile [Unknown]
  - Daydreaming [Unknown]
  - Auditory disorder [Unknown]
  - Brain stem auditory evoked response abnormal [Unknown]
  - Acute vestibular syndrome [Unknown]
  - Posture abnormal [Unknown]
  - Inner ear disorder [Unknown]
  - Heterophoria [Unknown]
  - Eye disorder [Unknown]
  - Reading disorder [Unknown]
  - Foetal exposure during pregnancy [Unknown]
  - Neonatal hypoacusis [Unknown]
  - Anxiety [Unknown]
